FAERS Safety Report 23500043 (Version 1)
Quarter: 2024Q1

REPORT INFORMATION
  Report Type: Spontaneous
  Country: GB (occurrence: GB)
  Receive Date: 20240208
  Receipt Date: 20240208
  Transmission Date: 20240410
  Serious: No
  Sender: FDA-Public Use
  Company Number: None

PATIENT
  Age: 32 Year
  Sex: Female
  Weight: 69 kg

DRUGS (3)
  1. CEPHALEXIN [Suspect]
     Active Substance: CEPHALEXIN
     Indication: Kidney infection
     Dosage: 500 MILLIGRAM, BID (CAPSULE, TWICE DAILY)
     Route: 065
     Dates: start: 20231106, end: 20231110
  2. CYCLOSERINE [Concomitant]
     Active Substance: CYCLOSERINE
     Indication: Psoriasis
     Dosage: UNK
     Route: 065
     Dates: start: 20220727, end: 20231106
  3. LAMOTRIGINE [Concomitant]
     Active Substance: LAMOTRIGINE
     Indication: Epilepsy
     Dosage: UNK
     Route: 065
     Dates: start: 20230901

REACTIONS (1)
  - Bile acid malabsorption [Recovering/Resolving]

NARRATIVE: CASE EVENT DATE: 20231106
